FAERS Safety Report 18846755 (Version 1)
Quarter: 2021Q1

REPORT INFORMATION
  Report Type: Report from Study
  Country: US (occurrence: US)
  Receive Date: 20210203
  Receipt Date: 20210203
  Transmission Date: 20210419
  Serious: No
  Sender: FDA-Public Use
  Company Number: US-EXELIXIS-CABO-20027268

PATIENT
  Sex: Female

DRUGS (2)
  1. CABOMETYX [Suspect]
     Active Substance: CABOZANTINIB S-MALATE
     Indication: RENAL CELL CARCINOMA
     Dosage: 40 MG
     Dates: start: 2019
  2. CABOMETYX [Suspect]
     Active Substance: CABOZANTINIB S-MALATE
     Dosage: 20 MG, QD
     Dates: start: 2019

REACTIONS (7)
  - Hyperkeratosis [Unknown]
  - Alopecia [Unknown]
  - Taste disorder [Unknown]
  - Dry skin [Unknown]
  - Neuropathy peripheral [Unknown]
  - Joint stiffness [Unknown]
  - Arthritis [Unknown]
